FAERS Safety Report 7377827-X (Version None)
Quarter: 2011Q1

REPORT INFORMATION
  Report Type: 
  Country: None (occurrence: None)
  Receive Date: 20110328
  Receipt Date: 20110315
  Transmission Date: 20110831
  Serious: Yes (Hospitalization)
  Sender: FDA-Public Use
  Company Number: NL-ROCHE-739799

PATIENT
  Age: 60 Year
  Sex: Male
  Weight: 100.6 kg

DRUGS (13)
  1. PREDNISOLONE [Suspect]
     Route: 048
     Dates: start: 20090114
  2. CYCLOSPORINE [Suspect]
     Route: 048
     Dates: start: 20090116
  3. PANTOPRAZOLE [Concomitant]
     Dates: start: 20090115
  4. PRAVASTATIN [Concomitant]
  5. ENALAPRIL MALEATE [Concomitant]
     Dates: start: 20091013
  6. CYCLOSPORINE [Suspect]
     Route: 048
     Dates: start: 20100114, end: 20100316
  7. MYCOPHENOLATE MOFETIL [Suspect]
     Route: 048
     Dates: start: 20100114
  8. METOPROLOL SUCCINATE [Concomitant]
     Dates: start: 20091013
  9. MYCOPHENOLATE MOFETIL [Suspect]
     Route: 048
  10. MYCOPHENOLATE MOFETIL [Suspect]
     Route: 048
     Dates: start: 20090116
  11. INSULIN GLARGINE [Concomitant]
  12. TAMSULOSIN HCL [Concomitant]
     Dates: start: 20091013
  13. CYCLOSPORINE [Suspect]
     Route: 048
     Dates: start: 20100317

REACTIONS (4)
  - CELLULITIS [None]
  - OSTEOMYELITIS [None]
  - CELLULITIS STREPTOCOCCAL [None]
  - DIABETIC ULCER [None]
